FAERS Safety Report 9790026 (Version 1)
Quarter: 2013Q4

REPORT INFORMATION
  Report Type: Spontaneous
  Country: US (occurrence: None)
  Receive Date: 20131230
  Receipt Date: 20131230
  Transmission Date: 20140711
  Serious: Yes (Life-Threatening, Hospitalization)
  Sender: FDA-Public Use
  Company Number: None

PATIENT
  Age: 23 Year
  Sex: Female
  Weight: 62.6 kg

DRUGS (3)
  1. ZOLPIDEM HCL [Suspect]
     Indication: INSOMNIA
     Dosage: AT BEDTIME, TAKEN BY MOUTH
     Dates: start: 20070627, end: 20080910
  2. ZOLPIDEM HCL [Suspect]
     Indication: NIGHTMARE
     Dosage: AT BEDTIME, TAKEN BY MOUTH
     Dates: start: 20070627, end: 20080910
  3. NORTRIPTYLINE [Suspect]
     Indication: DEPRESSION
     Dosage: TAKEN BY MOUTH
     Dates: start: 20080904, end: 20080908

REACTIONS (14)
  - Educational problem [None]
  - Impaired work ability [None]
  - Personality change [None]
  - Apathy [None]
  - Amnesia [None]
  - Drug dependence [None]
  - Intentional self-injury [None]
  - Haemorrhage [None]
  - Presyncope [None]
  - Scar [None]
  - Weight increased [None]
  - Drug withdrawal syndrome [None]
  - Fear [None]
  - Social problem [None]
